FAERS Safety Report 5349971-X (Version None)
Quarter: 2007Q2

REPORT INFORMATION
  Report Type: 
  Country: None (occurrence: None)
  Receive Date: 20070607
  Receipt Date: 20070606
  Transmission Date: 20071010
  Serious: Yes (Life-Threatening)
  Sender: FDA-Public Use
  Company Number: GB-SHR-GB-2007-019075

PATIENT
  Age: 32 Year
  Sex: Female
  Weight: 62 kg

DRUGS (4)
  1. YASMIN [Suspect]
     Dosage: 1 TAB(S), 1X/DAY
     Route: 048
     Dates: start: 20070130, end: 20070228
  2. FISH OIL [Concomitant]
     Route: 048
  3. VITAMIN B6 [Concomitant]
     Route: 048
  4. ASCORBIC ACID [Concomitant]
     Route: 048

REACTIONS (3)
  - ANGER [None]
  - DEPRESSION SUICIDAL [None]
  - SUICIDAL IDEATION [None]
